FAERS Safety Report 23389981 (Version 5)
Quarter: 2024Q1

REPORT INFORMATION
  Report Type: Spontaneous
  Country: US (occurrence: US)
  Receive Date: 20240111
  Receipt Date: 20240220
  Transmission Date: 20240409
  Serious: No
  Sender: FDA-Public Use
  Company Number: US-BoehringerIngelheim-2024-BI-001745

PATIENT
  Age: 54 Year
  Sex: Female

DRUGS (1)
  1. SPEVIGO [Suspect]
     Active Substance: SPESOLIMAB-SBZO
     Indication: Pustular psoriasis
     Dosage: 900MG/15ML
     Dates: start: 20240112

REACTIONS (3)
  - Condition aggravated [Unknown]
  - Skin infection [Unknown]
  - Pustule [Unknown]

NARRATIVE: CASE EVENT DATE: 20240118
